FAERS Safety Report 21614750 (Version 1)
Quarter: 2022Q4

REPORT INFORMATION
  Report Type: Spontaneous
  Country: US (occurrence: US)
  Receive Date: 20221118
  Receipt Date: 20221118
  Transmission Date: 20230113
  Serious: No
  Sender: FDA-Public Use
  Company Number: US-CHIESI-2022CHF04613

PATIENT
  Sex: Male

DRUGS (2)
  1. BRONCHITOL [Suspect]
     Active Substance: MANNITOL
     Indication: Cystic fibrosis
     Dosage: 80 MG (40 MG), 10 CAPSULES, TWICE DAILY
     Dates: start: 202207
  2. BRONCHITOL [Suspect]
     Active Substance: MANNITOL
     Indication: Cystic fibrosis
     Dosage: 80 MG (40 MG), 10 CAPSULES, TWICE DAILY
     Dates: start: 202207

REACTIONS (1)
  - Oropharyngeal pain [Unknown]

NARRATIVE: CASE EVENT DATE: 20220101
